FAERS Safety Report 6053179-2 (Version None)
Quarter: 2009Q1

REPORT INFORMATION
  Report Type: 
  Country: None (occurrence: None)
  Receive Date: 20090123
  Receipt Date: 20090114
  Transmission Date: 20090719
  Serious: Yes (Other)
  Sender: FDA-Public Use
  Company Number: GXKR2009GB00792

PATIENT
  Age: 70 Year
  Sex: Female

DRUGS (10)
  1. CLARITHROMYCIN [Suspect]
     Indication: PNEUMONIA
     Dosage: 500 MG, ORAL
     Route: 048
     Dates: start: 20081216, end: 20081216
  2. ALENDRONIC ACID      (ALENDRONIC ACID) [Concomitant]
  3. ALLOPURINOL [Concomitant]
  4. AMITRIPTYLINE HYDROCHLORIDE [Concomitant]
  5. ACETYLSALICYLIC ACID SRT [Concomitant]
  6. ATORVASTATIN CALCIUM [Concomitant]
  7. ISOSORBIDE MONONITRATE [Concomitant]
  8. AUGMENTINE (AMOXICILLIN SODIUM, AMOXICILLIN TRIHYDRATE, CLAVULUNATE PO [Concomitant]
  9. OMEPRAZOLE [Concomitant]
  10. TEMAZEPAM [Concomitant]

REACTIONS (2)
  - BODY TEMPERATURE INCREASED [None]
  - HYPOTENSION [None]
